FAERS Safety Report 8653890 (Version 3)
Quarter: 2012Q4

REPORT INFORMATION
  Report Type: 
  Country: GB (occurrence: GB)
  Receive Date: 20120709
  Receipt Date: 20120828
  Transmission Date: 20130627
  Serious: Yes (Hospitalization, Other)
  Sender: FDA-Public Use
  Company Number: IE-MPIJNJ-2012-02622

PATIENT

DRUGS (5)
  1. VELCADE [Suspect]
     Indication: MULTIPLE MYELOMA
     Dosage: 1.3 mg/m2, UNK
     Route: 042
     Dates: start: 20110927, end: 20120110
  2. ZIMOVANE [Concomitant]
     Dosage: 7.5 mg, UNK
  3. DIFENE [Concomitant]
     Indication: PAIN
     Dosage: 75 mg, UNK
  4. ALLOPURINOL [Concomitant]
     Indication: GOUT
     Dosage: 30 mg, UNK
  5. OXYCONTIN [Concomitant]
     Indication: PAIN
     Dosage: 10 mg, UNK

REACTIONS (3)
  - Hypotension [Recovered/Resolved]
  - Fall [Recovered/Resolved]
  - Autonomic neuropathy [Recovered/Resolved]
